FAERS Safety Report 8286313-4 (Version None)
Quarter: 2012Q2

REPORT INFORMATION
  Report Type: 
  Country: None (occurrence: None)
  Receive Date: 20120411
  Receipt Date: 20120411
  Transmission Date: 20120825
  Serious: No
  Sender: FDA-Public Use
  Company Number: None

PATIENT
  Age: 57 Year
  Sex: Male
  Weight: 117.9352 kg

DRUGS (3)
  1. VERAPAMIL [Suspect]
     Indication: BLOOD PRESSURE
     Dosage: 1-DAILY
     Dates: start: 20120101
  2. VERAPAMIL [Suspect]
     Indication: HYPERTENSION
     Dosage: 1-DAILY
     Dates: start: 20120101
  3. VERAPAMIL [Suspect]
     Indication: HEART RATE
     Dosage: 1-DAILY
     Dates: start: 20120101

REACTIONS (1)
  - DYSPNOEA [None]
